FAERS Safety Report 17291100 (Version 1)
Quarter: 2020Q1

REPORT INFORMATION
  Report Type: Spontaneous
  Country: FI (occurrence: FI)
  Receive Date: 20200121
  Receipt Date: 20200121
  Transmission Date: 20200409
  Serious: Yes (Other)
  Sender: FDA-Public Use
  Company Number: FI-BAYER-2020-005421

PATIENT
  Sex: Female

DRUGS (1)
  1. KYLEENA [Suspect]
     Active Substance: LEVONORGESTREL
     Dosage: 17.5 MCG/24HR, CONT
     Route: 015
     Dates: start: 20191001

REACTIONS (4)
  - Ectopic pregnancy with contraceptive device [None]
  - Abdominal pain lower [None]
  - Drug ineffective [None]
  - Genital haemorrhage [None]

NARRATIVE: CASE EVENT DATE: 2019
